FAERS Safety Report 16004777 (Version 1)
Quarter: 2019Q1

REPORT INFORMATION
  Report Type: Spontaneous
  Country: IR (occurrence: IR)
  Receive Date: 20190226
  Receipt Date: 20190226
  Transmission Date: 20190418
  Serious: Yes (Other)
  Sender: FDA-Public Use
  Company Number: PHHY2019IR041937

PATIENT
  Sex: Female
  Weight: 14 kg

DRUGS (7)
  1. ARGININE [Suspect]
     Active Substance: ARGININE
     Indication: ORNITHINE TRANSCARBAMOYLASE DEFICIENCY
     Dosage: 200 MG/KG, QD
     Route: 065
  2. TACROLIMUS. [Suspect]
     Active Substance: TACROLIMUS
     Indication: LIVER TRANSPLANT
     Dosage: 1 MG, BID
     Route: 065
  3. SODIUM PHENYLBUTYRATE. [Suspect]
     Active Substance: SODIUM PHENYLBUTYRATE
     Indication: ORNITHINE TRANSCARBAMOYLASE DEFICIENCY
     Dosage: 250 MG/KG, QD
     Route: 065
  4. ANTITHYMOCYTE IMMUNOGLOBULIN [Suspect]
     Active Substance: THYMOCYTE IMMUNE GLOBULIN NOS
     Indication: IMMUNOSUPPRESSANT DRUG THERAPY
  5. ANTITHYMOCYTE IMMUNOGLOBULIN [Suspect]
     Active Substance: THYMOCYTE IMMUNE GLOBULIN NOS
     Indication: LIVER TRANSPLANT
     Dosage: UNK
     Route: 065
  6. TACROLIMUS. [Suspect]
     Active Substance: TACROLIMUS
     Indication: IMMUNOSUPPRESSANT DRUG THERAPY
  7. SODIUM BENZOATE [Suspect]
     Active Substance: SODIUM BENZOATE
     Indication: ORNITHINE TRANSCARBAMOYLASE DEFICIENCY
     Dosage: 250 MG/KG, QD
     Route: 065

REACTIONS (5)
  - Intestinal perforation [Recovered/Resolved]
  - Product use in unapproved indication [Unknown]
  - Portal vein thrombosis [Unknown]
  - Seizure [Unknown]
  - Drug ineffective [Unknown]
